FAERS Safety Report 13263261 (Version 2)
Quarter: 2017Q1

REPORT INFORMATION
  Report Type: Spontaneous
  Country: JP (occurrence: JP)
  Receive Date: 20170223
  Receipt Date: 20170302
  Transmission Date: 20170428
  Serious: Yes (Death, Other)
  Sender: FDA-Public Use
  Company Number: JP-ROCHE-1897990

PATIENT
  Age: 91 Year
  Sex: Female

DRUGS (6)
  1. CIMETIDINE [Concomitant]
     Active Substance: CIMETIDINE
     Route: 065
  2. ELIETEN [Concomitant]
     Active Substance: METOCLOPRAMIDE
     Dosage: ONCE DOSAGE: 1 (UNIT UNCERTAINTY)
     Route: 048
  3. MAGMITT [Concomitant]
     Active Substance: MAGNESIUM OXIDE
     Route: 048
     Dates: start: 20170209, end: 20170216
  4. PRIMPERAN [Concomitant]
     Active Substance: METOCLOPRAMIDE HYDROCHLORIDE
     Route: 065
     Dates: end: 20170216
  5. TAMIFLU [Suspect]
     Active Substance: OSELTAMIVIR PHOSPHATE
     Indication: ANTIVIRAL PROPHYLAXIS
     Route: 048
     Dates: start: 20170214, end: 20170216
  6. LAXOBERON [Concomitant]
     Active Substance: SODIUM PICOSULFATE
     Dosage: DOSAGE IS UNCERTAIN.
     Route: 065

REACTIONS (4)
  - Blood pressure decreased [Unknown]
  - Sputum increased [Unknown]
  - Multiple organ dysfunction syndrome [Fatal]
  - Hypothermia [Fatal]

NARRATIVE: CASE EVENT DATE: 20170216
